FAERS Safety Report 9808181 (Version 1)
Quarter: 2014Q1

REPORT INFORMATION
  Report Type: Spontaneous
  Country: US (occurrence: None)
  Receive Date: 20140108
  Receipt Date: 20140108
  Transmission Date: 20141002
  Serious: Yes (Death, Other)
  Sender: FDA-Public Use
  Company Number: KAD201312-001815

PATIENT
  Age: 54 Year
  Sex: Female

DRUGS (2)
  1. ANASTROZOLE [Suspect]
  2. TRASTUZUMAB [Suspect]

REACTIONS (4)
  - Graft versus host disease [None]
  - Condition aggravated [None]
  - Drug intolerance [None]
  - Squamous cell carcinoma of the tongue [None]
